FAERS Safety Report 12705870 (Version 1)
Quarter: 2016Q3

REPORT INFORMATION
  Report Type: Spontaneous
  Country: US (occurrence: US)
  Receive Date: 20160901
  Receipt Date: 20160901
  Transmission Date: 20161109
  Serious: No
  Sender: FDA-Public Use
  Company Number: US-TEVA-678534USA

PATIENT
  Age: 31 Year
  Sex: Female

DRUGS (3)
  1. COPAXONE [Suspect]
     Active Substance: GLATIRAMER ACETATE
     Indication: MULTIPLE SCLEROSIS
     Route: 058
     Dates: start: 201605
  2. FLONASE [Concomitant]
     Active Substance: FLUTICASONE PROPIONATE
  3. SYNTEC [Concomitant]

REACTIONS (3)
  - Dyspnoea [Unknown]
  - Palpitations [Unknown]
  - Flushing [Unknown]

NARRATIVE: CASE EVENT DATE: 201606
